FAERS Safety Report 8151874-2 (Version None)
Quarter: 2012Q1

REPORT INFORMATION
  Report Type: 
  Country: None (occurrence: None)
  Receive Date: 20120221
  Receipt Date: 20120210
  Transmission Date: 20120608
  Serious: No
  Sender: FDA-Public Use
  Company Number: US-BIOGENIDEC-2012BI005571

PATIENT
  Age: 53 Year
  Sex: Female

DRUGS (5)
  1. FENTANYL-100 [Concomitant]
     Indication: PAIN
  2. DURAGESIC-100 [Concomitant]
     Indication: PAIN
  3. BENADRYL HYDROCHLORIDE INJ [Concomitant]
     Indication: PREMEDICATION
     Dates: start: 20120118, end: 20120118
  4. TYSABRI [Suspect]
     Indication: MULTIPLE SCLEROSIS
     Route: 042
     Dates: start: 20120118, end: 20120101
  5. ROXICODONE [Concomitant]
     Indication: PAIN

REACTIONS (10)
  - VISION BLURRED [None]
  - HEADACHE [None]
  - PRURITUS [None]
  - BALANCE DISORDER [None]
  - NAUSEA [None]
  - VISUAL ACUITY REDUCED [None]
  - ARTHRALGIA [None]
  - VOMITING [None]
  - URTICARIA [None]
  - BACK PAIN [None]
